FAERS Safety Report 7485013-8 (Version None)
Quarter: 2011Q2

REPORT INFORMATION
  Report Type: 
  Country: None (occurrence: None)
  Receive Date: 20110517
  Receipt Date: 20101012
  Transmission Date: 20111010
  Serious: No
  Sender: FDA-Public Use
  Company Number: US-BAYER-201022466BCC

PATIENT
  Sex: Male
  Weight: 113.64 kg

DRUGS (2)
  1. NAPROXEN (ALEVE) [Suspect]
     Indication: MYALGIA
  2. NAPROXEN (ALEVE) [Suspect]
     Indication: HEADACHE
     Dosage: 220 MG, UNK
     Route: 048

REACTIONS (2)
  - HEADACHE [None]
  - MYALGIA [None]
